FAERS Safety Report 16026581 (Version 1)
Quarter: 2019Q1

REPORT INFORMATION
  Report Type: Spontaneous
  Country: US (occurrence: US)
  Receive Date: 20190302
  Receipt Date: 20190302
  Transmission Date: 20190418
  Serious: Yes (Other)
  Sender: FDA-Public Use
  Company Number: US-PRINSTON PHARMACEUTICAL INC.-2018PRN01309

PATIENT
  Sex: Female

DRUGS (1)
  1. VALSARTAN. [Suspect]
     Active Substance: VALSARTAN
     Indication: BLOOD PRESSURE ABNORMAL
     Dosage: 200 MG, 1X/DAY
     Route: 048
     Dates: start: 2015

REACTIONS (17)
  - Pruritus [Unknown]
  - Localised infection [Unknown]
  - Headache [Unknown]
  - Dyspepsia [Unknown]
  - Recalled product administered [Unknown]
  - Memory impairment [Not Recovered/Not Resolved]
  - Abdominal pain upper [Unknown]
  - Pain in extremity [Unknown]
  - Gastrooesophageal reflux disease [Not Recovered/Not Resolved]
  - Rectal haemorrhage [Unknown]
  - Back pain [Unknown]
  - Burning sensation [Unknown]
  - Muscle disorder [Not Recovered/Not Resolved]
  - Rash [Unknown]
  - Bone disorder [Not Recovered/Not Resolved]
  - Groin pain [Unknown]
  - Oropharyngeal pain [Unknown]
